FAERS Safety Report 18601586 (Version 1)
Quarter: 2020Q4

REPORT INFORMATION
  Report Type: Spontaneous
  Country: US (occurrence: US)
  Receive Date: 20201210
  Receipt Date: 20201210
  Transmission Date: 20210114
  Serious: No
  Sender: FDA-Public Use
  Company Number: US-TAKEDA-2020TUS055032

PATIENT
  Age: 82 Year
  Sex: Female
  Weight: 52 kg

DRUGS (1)
  1. DEXILANT [Suspect]
     Active Substance: DEXLANSOPRAZOLE
     Indication: DYSPEPSIA
     Dosage: 60 MILLIGRAM, QD
     Route: 065

REACTIONS (2)
  - Extra dose administered [Unknown]
  - Diarrhoea [Not Recovered/Not Resolved]
